FAERS Safety Report 6941424-8 (Version None)
Quarter: 2010Q3

REPORT INFORMATION
  Report Type: 
  Country: None (occurrence: None)
  Receive Date: 20100824
  Receipt Date: 20100824
  Transmission Date: 20110219
  Serious: Yes (Disabling)
  Sender: FDA-Public Use
  Company Number: None

PATIENT
  Age: 53 Year
  Sex: Male
  Weight: 83.9154 kg

DRUGS (1)
  1. SEROQUEL [Suspect]
     Indication: BIPOLAR DISORDER
     Dosage: 600 MG DAILY PO
     Route: 048
     Dates: start: 20100105, end: 20100821

REACTIONS (3)
  - ARRHYTHMIA [None]
  - HEART RATE DECREASED [None]
  - HEART RATE INCREASED [None]
